FAERS Safety Report 16929238 (Version 1)
Quarter: 2019Q4

REPORT INFORMATION
  Report Type: Spontaneous
  Country: GB (occurrence: GB)
  Receive Date: 20191017
  Receipt Date: 20191017
  Transmission Date: 20200122
  Serious: Yes (Other)
  Sender: FDA-Public Use
  Company Number: GB-OXFORD PHARMACEUTICALS, LLC-2019OXF00153

PATIENT
  Age: 31 Year
  Sex: Female

DRUGS (1)
  1. GLYCOPYRROLATE. [Suspect]
     Active Substance: GLYCOPYRROLATE
     Indication: BRADYCARDIA
     Dosage: 200 ?G
     Route: 042

REACTIONS (6)
  - Hypertension [Recovered/Resolved]
  - Acute pulmonary oedema [Recovered/Resolved]
  - Headache [Recovered/Resolved]
  - Tachycardia [Recovered/Resolved]
  - Tachypnoea [Recovered/Resolved]
  - Stress cardiomyopathy [Recovered/Resolved]
